FAERS Safety Report 15269528 (Version 2)
Quarter: 2020Q2

REPORT INFORMATION
  Report Type: Report from Study
  Country: US (occurrence: US)
  Receive Date: 20180813
  Receipt Date: 20200618
  Transmission Date: 20200713
  Serious: Yes (Hospitalization)
  Sender: FDA-Public Use
  Company Number: US-ROCHE-2166874

PATIENT
  Age: 46 Year
  Sex: Female
  Weight: 124.85 kg

DRUGS (2)
  1. RITUXAN [Suspect]
     Active Substance: RITUXIMAB
     Indication: PRODUCT USED FOR UNKNOWN INDICATION
     Route: 065
     Dates: start: 2015, end: 201710
  2. OCREVUS [Suspect]
     Active Substance: OCRELIZUMAB
     Indication: RELAPSING MULTIPLE SCLEROSIS
     Dosage: ONGOING:YES?DATE OF TREATMENT: 20/APR/2018, 22/JAN/2019, 28/JAN/2019, 17/JUL/2019, 08/JAN/2020 AND 1
     Route: 065
     Dates: start: 201804

REACTIONS (2)
  - Lung abscess [Recovering/Resolving]
  - Empyema [Recovering/Resolving]

NARRATIVE: CASE EVENT DATE: 20180801
